FAERS Safety Report 8971186 (Version 1)
Quarter: 2012Q4

REPORT INFORMATION
  Report Type: Report from Study
  Country: GB (occurrence: GB)
  Receive Date: 20121218
  Receipt Date: 20121218
  Transmission Date: 20130627
  Serious: Yes (Hospitalization)
  Sender: FDA-Public Use
  Company Number: GB-PFIZER INC-2012314568

PATIENT
  Age: 31 Year
  Sex: Female
  Weight: 40.8 kg

DRUGS (9)
  1. EPIRUBICIN HCL [Suspect]
     Indication: BREAST CANCER
     Dosage: 90 mg, 3 in 1 week
     Route: 042
     Dates: start: 20090930, end: 20091209
  2. EPIRUBICIN HCL [Suspect]
     Dosage: 75 mg,  3 in 1 week
     Route: 042
     Dates: start: 20091216, end: 20100127
  3. BEVACIZUMAB [Suspect]
     Indication: BREAST CANCER
     Dosage: 630 mg, every 3 weeks cycle 1
     Route: 042
     Dates: start: 20090930, end: 20091209
  4. BEVACIZUMAB [Suspect]
     Dosage: 630 mg, cyclic
     Route: 042
     Dates: start: 20091216, end: 20100707
  5. BEVACIZUMAB [Suspect]
     Dosage: 630 mg, cyclic
     Route: 042
     Dates: start: 20100714
  6. FLUOROURACIL [Suspect]
     Indication: BREAST CANCER
     Dosage: 700 mg, once every 3 weeks
     Route: 042
     Dates: start: 20090930, end: 20091209
  7. FLUOROURACIL [Suspect]
     Dosage: 600 mg, cyclic
     Route: 042
     Dates: start: 20091216, end: 20100127
  8. CYCLOPHOSPHAMIDE [Suspect]
     Indication: BREAST CANCER
     Dosage: 700 mg,  3 in 1 week
     Route: 042
     Dates: start: 20090930, end: 20091118
  9. CYCLOPHOSPHAMIDE [Suspect]
     Dosage: 600 mg,  3 in 1 week
     Route: 042
     Dates: end: 20100127

REACTIONS (1)
  - Non-cardiac chest pain [Recovered/Resolved]
